FAERS Safety Report 4629047-7 (Version None)
Quarter: 2005Q2

REPORT INFORMATION
  Report Type: 
  Country: None (occurrence: None)
  Receive Date: 20050404
  Receipt Date: 20050404
  Transmission Date: 20051028
  Serious: Yes (Life-Threatening, Hospitalization, Disabling)
  Sender: FDA-Public Use
  Company Number: None

PATIENT
  Age: 39 Year
  Sex: Male
  Weight: 88.4514 kg

DRUGS (2)
  1. VIOXX [Suspect]
     Indication: INFLAMMATION
     Dosage: 25MG 2 TIMES/DAY
     Dates: start: 20010101, end: 20030201
  2. VIOXX [Suspect]
     Indication: PAIN
     Dosage: 25MG 2 TIMES/DAY
     Dates: start: 20010101, end: 20030201

REACTIONS (2)
  - IMPAIRED WORK ABILITY [None]
  - MYOCARDIAL INFARCTION [None]
